FAERS Safety Report 18452214 (Version 1)
Quarter: 2020Q4

REPORT INFORMATION
  Report Type: Spontaneous
  Country: US (occurrence: US)
  Receive Date: 20201101
  Receipt Date: 20201101
  Transmission Date: 20210114
  Serious: Yes (Death)
  Sender: FDA-Public Use
  Company Number: None

PATIENT
  Age: 59 Year
  Sex: Female
  Weight: 67.05 kg

DRUGS (13)
  1. CAPECITABINE. [Suspect]
     Active Substance: CAPECITABINE
     Indication: METASTASES TO BREAST
     Route: 048
     Dates: start: 20200730, end: 20201101
  2. MAGOX 400 [Concomitant]
     Active Substance: MAGNESIUM OXIDE
  3. TAMOXIFEN CITRATE. [Concomitant]
     Active Substance: TAMOXIFEN CITRATE
  4. K-TAB [Concomitant]
     Active Substance: POTASSIUM CHLORIDE
  5. MORPHINE SULFATE ER [Concomitant]
     Active Substance: MORPHINE SULFATE
  6. NEULASTA [Concomitant]
     Active Substance: PEGFILGRASTIM
  7. ONDANSETRON HCL [Concomitant]
     Active Substance: ONDANSETRON HYDROCHLORIDE
  8. FASLODEX [Concomitant]
     Active Substance: FULVESTRANT
  9. HYDROCODONE-ACETAMINOPHEN [Concomitant]
     Active Substance: ACETAMINOPHEN\HYDROCODONE
  10. TRIPLE MAGNESIUM COMPLEX [Concomitant]
  11. PROMETHAZINE HCL [Concomitant]
     Active Substance: PROMETHAZINE HYDROCHLORIDE
  12. MEGESTROL ACETATE. [Concomitant]
     Active Substance: MEGESTROL ACETATE
  13. COLACE [Concomitant]
     Active Substance: DOCUSATE SODIUM

REACTIONS (1)
  - Death [None]

NARRATIVE: CASE EVENT DATE: 20201101
